FAERS Safety Report 8595104-6 (Version None)
Quarter: 2012Q3

REPORT INFORMATION
  Report Type: 
  Country: None (occurrence: None)
  Receive Date: 20120815
  Receipt Date: 20120801
  Transmission Date: 20120928
  Serious: Yes (Death)
  Sender: FDA-Public Use
  Company Number: GB-MYLANLABS-2012S1016181

PATIENT
  Sex: Male

DRUGS (2)
  1. HEPARIN [Suspect]
     Route: 065
  2. WARFARIN SODIUM [Suspect]
     Route: 065

REACTIONS (4)
  - ABDOMINAL WALL HAEMATOMA [None]
  - COMPARTMENT SYNDROME [None]
  - METABOLIC ACIDOSIS [None]
  - NEUTROPHILIA [None]
